FAERS Safety Report 12824210 (Version 1)
Quarter: 2016Q4

REPORT INFORMATION
  Report Type: Spontaneous
  Country: BR (occurrence: BR)
  Receive Date: 20161007
  Receipt Date: 20161007
  Transmission Date: 20170207
  Serious: Yes (Other)
  Sender: FDA-Public Use
  Company Number: BR-GLAXOSMITHKLINE-BR2016GSK146232

PATIENT
  Sex: Male
  Weight: 32 kg

DRUGS (9)
  1. FLIXOTIDE (CFC-FREE) [Suspect]
     Active Substance: FLUTICASONE PROPIONATE
     Dosage: 1 PUFF(S), QD, 250 UG
     Dates: end: 201604
  2. AEROLIN [Suspect]
     Active Substance: ALBUTEROL
     Indication: ASTHMA
     Dosage: 2 PUFF(S), DOSE WAS 2 PUFFS EACH 4 HOURS FOR 2 DAYS AND THEN DECREASED.
  3. BEROTEC [Suspect]
     Active Substance: FENOTEROL HYDROBROMIDE
     Indication: PRODUCT USED FOR UNKNOWN INDICATION
     Dosage: UNK, NEEDED TO AT HIGHER DOSE (NOT SPECIFIED) AT HOSPITAL.
  4. ZINNAT [Concomitant]
     Active Substance: CEFUROXIME AXETIL
     Indication: PRODUCT USED FOR UNKNOWN INDICATION
     Dosage: UNK
  5. VANNAIR [Suspect]
     Active Substance: BUDESONIDE\FORMOTEROL FUMARATE DIHYDRATE
     Indication: ASTHMA
     Dosage: UNK
  6. MONTELUKAST SODIUM. [Concomitant]
     Active Substance: MONTELUKAST SODIUM
     Indication: HYPERSENSITIVITY
     Dosage: 1 TABLET, QD
  7. CLAVULIN BD [Suspect]
     Active Substance: AMOXICILLIN\CLAVULANATE POTASSIUM
     Indication: EAR PAIN
     Dosage: 7.5 ML, BID
  8. FLIXOTIDE (CFC-FREE) [Suspect]
     Active Substance: FLUTICASONE PROPIONATE
     Dosage: 50 UG, BID, EACH 12 HOURS
  9. FLIXOTIDE (CFC-FREE) [Suspect]
     Active Substance: FLUTICASONE PROPIONATE
     Indication: ASTHMA
     Dosage: 50 UG, UNK, USE FOR 1 YEAR, USED 2 PUFFS BUT DID NOT REMEMBER HOW MANY TIMES A DAY

REACTIONS (10)
  - Heart rate increased [Recovered/Resolved]
  - Pneumonia [Unknown]
  - Drug ineffective [Unknown]
  - Product use issue [Unknown]
  - Decreased appetite [Recovered/Resolved]
  - Inappropriate schedule of drug administration [Unknown]
  - Asthma [Recovered/Resolved]
  - Ear pain [Recovered/Resolved]
  - Overdose [Unknown]
  - Off label use [Unknown]
